FAERS Safety Report 25448358 (Version 2)
Quarter: 2025Q2

REPORT INFORMATION
  Report Type: Spontaneous
  Country: US (occurrence: US)
  Receive Date: 20250617
  Receipt Date: 20250622
  Transmission Date: 20250717
  Serious: No
  Sender: ELI LILLY AND COMPANY
  Company Number: US-ELI_LILLY_AND_COMPANY-US202506012050

PATIENT
  Age: 68 Year
  Sex: Female

DRUGS (2)
  1. ZEPBOUND [Suspect]
     Active Substance: TIRZEPATIDE
     Indication: Weight control
     Route: 065
     Dates: start: 20250518
  2. ZEPBOUND [Suspect]
     Active Substance: TIRZEPATIDE
     Indication: Peripheral swelling

REACTIONS (5)
  - Paraesthesia oral [Recovered/Resolved]
  - Muscle tightness [Recovered/Resolved]
  - Sensation of foreign body [Recovered/Resolved]
  - Lip swelling [Recovered/Resolved]
  - Swollen tongue [Unknown]
